FAERS Safety Report 9316788 (Version 1)
Quarter: 2013Q2

REPORT INFORMATION
  Report Type: Spontaneous
  Country: US (occurrence: US)
  Receive Date: 20130530
  Receipt Date: 20130530
  Transmission Date: 20140414
  Serious: No
  Sender: FDA-Public Use
  Company Number: US-MYLANLABS-2013S1001395

PATIENT
  Sex: Male

DRUGS (1)
  1. ZOLPIDEM TARTRATE TABLETS [Suspect]

REACTIONS (1)
  - Drug ineffective [Not Recovered/Not Resolved]
